FAERS Safety Report 9571176 (Version 2)
Quarter: 2013Q4

REPORT INFORMATION
  Report Type: Report from Study
  Country: AR (occurrence: AR)
  Receive Date: 20131001
  Receipt Date: 20131129
  Transmission Date: 20140711
  Serious: Yes (Hospitalization, Other)
  Sender: FDA-Public Use
  Company Number: PHHY2013AR109160

PATIENT
  Age: 58 Year
  Sex: Male

DRUGS (2)
  1. ONBREZ [Suspect]
     Indication: EMPHYSEMA
     Dosage: 150 UG, UNK
     Dates: start: 201308, end: 20130905
  2. ONBREZ [Suspect]
     Indication: OFF LABEL USE

REACTIONS (6)
  - Pancreatic duct obstruction [Recovered/Resolved]
  - Cholelithiasis [Recovered/Resolved]
  - Pneumonia [Recovered/Resolved]
  - Blood pressure decreased [Recovering/Resolving]
  - Wound dehiscence [Recovering/Resolving]
  - Fall [Recovering/Resolving]
